FAERS Safety Report 6124646-8 (Version None)
Quarter: 2009Q1

REPORT INFORMATION
  Report Type: 
  Country: None (occurrence: None)
  Receive Date: 20090319
  Receipt Date: 20090313
  Transmission Date: 20090719
  Serious: Yes (Hospitalization)
  Sender: FDA-Public Use
  Company Number: B0564904A

PATIENT
  Age: 9 Year
  Sex: Male

DRUGS (5)
  1. FLUTIDE [Suspect]
     Indication: DRUG USE FOR UNKNOWN INDICATION
     Dosage: 50MCG TWICE PER DAY
     Route: 055
  2. ZOVIRAX [Suspect]
     Indication: HERPES VIRUS INFECTION
     Route: 048
  3. CEFZON [Concomitant]
     Indication: DRUG USE FOR UNKNOWN INDICATION
     Route: 048
  4. CALONAL [Concomitant]
     Indication: DRUG USE FOR UNKNOWN INDICATION
     Route: 065
  5. ASVERIN [Concomitant]
     Indication: DRUG USE FOR UNKNOWN INDICATION
     Route: 048

REACTIONS (1)
  - STEVENS-JOHNSON SYNDROME [None]
